FAERS Safety Report 8843254 (Version 4)
Quarter: 2012Q4

REPORT INFORMATION
  Report Type: 
  Country: JP (occurrence: JP)
  Receive Date: 20121016
  Receipt Date: 20121127
  Transmission Date: 20130627
  Serious: Yes (Hospitalization, Other)
  Sender: FDA-Public Use
  Company Number: PHHY2012JP091341

PATIENT
  Age: 60 Year
  Sex: Female
  Weight: 40 kg

DRUGS (9)
  1. FEMARA [Suspect]
     Indication: BREAST CANCER STAGE IV
     Dosage: 2.5 mg, daily
     Route: 048
  2. PROTON PUMP INHIBITORS [Concomitant]
     Dosage: UNK UKN, UNK
  3. OXYCODONE HYDROCHLORIDE [Concomitant]
     Dosage: UNK UKN, UNK
     Route: 048
  4. RANMARK [Concomitant]
     Dosage: UNK UKN, UNK
     Route: 058
  5. RADIOTHERAPY [Concomitant]
     Indication: METASTASES TO BONE
     Dosage: 30 GY, UNK
     Dates: start: 20120613, end: 20120619
  6. ZINC CHLORIDE [Concomitant]
     Dosage: UNK UKN, UNK
     Dates: end: 20120717
  7. OXYCONTIN [Concomitant]
     Indication: PAIN
     Dosage: 15 mg, UNK
     Route: 048
  8. CALONAL [Concomitant]
     Indication: PAIN
     Dosage: 200 mg, UNK
     Route: 048
     Dates: start: 20120913, end: 20120930
  9. DENOSUMAB [Concomitant]
     Dosage: UNK UKN, UNK
     Route: 058

REACTIONS (3)
  - Interstitial lung disease [Not Recovered/Not Resolved]
  - Dyspnoea [Not Recovered/Not Resolved]
  - Cough [Not Recovered/Not Resolved]
